FAERS Safety Report 17403132 (Version 1)
Quarter: 2020Q1

REPORT INFORMATION
  Report Type: Spontaneous
  Country: AU (occurrence: AU)
  Receive Date: 20200211
  Receipt Date: 20200211
  Transmission Date: 20200409
  Serious: Yes (Other)
  Sender: FDA-Public Use
  Company Number: AU-JNJFOC-20200200543

PATIENT
  Age: 46 Year
  Sex: Male

DRUGS (2)
  1. INVEGA SUSTENNA [Suspect]
     Active Substance: PALIPERIDONE PALMITATE
     Indication: SCHIZOPHRENIA
     Dosage: 4 TH INJECTION
     Route: 030
     Dates: start: 20190816
  2. INVEGA SUSTENNA [Suspect]
     Active Substance: PALIPERIDONE PALMITATE
     Route: 030
     Dates: start: 20191205

REACTIONS (1)
  - Physical assault [Unknown]

NARRATIVE: CASE EVENT DATE: 201909
